FAERS Safety Report 13905531 (Version 1)
Quarter: 2017Q3

REPORT INFORMATION
  Report Type: Spontaneous
  Country: US (occurrence: None)
  Receive Date: 20170821
  Receipt Date: 20170821
  Transmission Date: 20171127
  Serious: Yes (Life-Threatening, Other)
  Sender: FDA-Public Use
  Company Number: None

PATIENT
  Age: 25 Year
  Sex: Female
  Weight: 77.11 kg

DRUGS (1)
  1. SUBOXONE [Suspect]
     Active Substance: BUPRENORPHINE HYDROCHLORIDE\NALOXONE HYDROCHLORIDE
     Indication: DRUG DEPENDENCE
     Dosage: 8MG/2MG
     Route: 048
     Dates: start: 20170726

REACTIONS (8)
  - Rash [None]
  - Dyspnoea [None]
  - Pharyngeal oedema [None]
  - Headache [None]
  - Abdominal pain upper [None]
  - Vomiting [None]
  - Erythema [None]
  - Urticaria [None]
